FAERS Safety Report 9212473 (Version 3)
Quarter: 2013Q3

REPORT INFORMATION
  Report Type: Spontaneous
  Country: US (occurrence: US)
  Receive Date: 20130404
  Receipt Date: 20130912
  Transmission Date: 20140515
  Serious: No
  Sender: FDA-Public Use
  Company Number: US-009507513-1304USA001423

PATIENT
  Sex: Male

DRUGS (4)
  1. COSOPT PF [Suspect]
     Indication: INTRAOCULAR PRESSURE INCREASED
     Dosage: 2%-0.5% 1 STD PKG OF 60; ONE DROP EACH EYE TWICE A DAY
     Route: 031
  2. LOSARTAN POTASSIUM [Suspect]
     Indication: HYPERTENSION
     Dosage: UNK
     Route: 048
  3. TRAVATAN [Suspect]
  4. ZETIA [Concomitant]
     Route: 048

REACTIONS (4)
  - Dysgeusia [Not Recovered/Not Resolved]
  - Drug dose omission [Unknown]
  - Product packaging quantity issue [Unknown]
  - Medication error [Unknown]
